FAERS Safety Report 18736920 (Version 1)
Quarter: 2021Q1

REPORT INFORMATION
  Report Type: Spontaneous
  Country: US (occurrence: US)
  Receive Date: 20210113
  Receipt Date: 20210113
  Transmission Date: 20210419
  Serious: Yes (Other)
  Sender: FDA-Public Use
  Company Number: US-MYLANLABS-2021M1002059

PATIENT
  Age: 54 Year
  Sex: Male

DRUGS (5)
  1. RUCAPARIB [Suspect]
     Active Substance: RUCAPARIB
     Indication: ADENOCARCINOMA PANCREAS
     Route: 065
  2. INSULIN [Concomitant]
     Active Substance: INSULIN NOS
     Indication: TYPE 2 DIABETES MELLITUS
     Route: 065
  3. RUCAPARIB [Suspect]
     Active Substance: RUCAPARIB
     Indication: GALLBLADDER ADENOCARCINOMA
  4. CISPLATIN. [Suspect]
     Active Substance: CISPLATIN
     Indication: GALLBLADDER ADENOCARCINOMA
  5. CISPLATIN. [Suspect]
     Active Substance: CISPLATIN
     Indication: ADENOCARCINOMA PANCREAS
     Route: 065

REACTIONS (4)
  - Chronic kidney disease [Recovering/Resolving]
  - Toxicity to various agents [Unknown]
  - Off label use [Unknown]
  - Condition aggravated [Recovering/Resolving]
